FAERS Safety Report 7970440-2 (Version None)
Quarter: 2011Q4

REPORT INFORMATION
  Report Type: 
  Country: None (occurrence: None)
  Receive Date: 20111212
  Receipt Date: 20111201
  Transmission Date: 20120403
  Serious: Yes (Hospitalization, Disabling)
  Sender: FDA-Public Use
  Company Number: PHEH2011US05403

PATIENT
  Sex: Male
  Weight: 126.36 kg

DRUGS (1)
  1. EXJADE [Suspect]
     Indication: HAEMOCHROMATOSIS
     Dosage: 1000 MG, DAILY
     Route: 048
     Dates: start: 20110511

REACTIONS (2)
  - ASTHENIA [None]
  - OEDEMA PERIPHERAL [None]
